FAERS Safety Report 18711528 (Version 1)
Quarter: 2021Q1

REPORT INFORMATION
  Report Type: Report from Study
  Country: CA (occurrence: CA)
  Receive Date: 20210107
  Receipt Date: 20210107
  Transmission Date: 20210419
  Serious: Yes (Hospitalization, Other)
  Sender: FDA-Public Use
  Company Number: CA-BRISTOL-MYERS SQUIBB COMPANY-BMS-2019-056677

PATIENT
  Age: 80 Year
  Sex: Female

DRUGS (8)
  1. XARELTO [Concomitant]
     Active Substance: RIVAROXABAN
     Indication: PRODUCT USED FOR UNKNOWN INDICATION
     Dosage: UNK
     Route: 065
  2. METOPROLOL. [Concomitant]
     Active Substance: METOPROLOL
     Indication: PRODUCT USED FOR UNKNOWN INDICATION
     Dosage: UNK
     Route: 065
  3. LIPITOR [Concomitant]
     Active Substance: ATORVASTATIN CALCIUM
     Indication: PRODUCT USED FOR UNKNOWN INDICATION
     Dosage: UNK
     Route: 065
  4. FOLIC ACID. [Concomitant]
     Active Substance: FOLIC ACID
     Indication: PRODUCT USED FOR UNKNOWN INDICATION
     Dosage: UNK
     Route: 065
  5. VITAMIN D NOS [Concomitant]
     Active Substance: VITAMIN D NOS
     Indication: PRODUCT USED FOR UNKNOWN INDICATION
     Dosage: UNK
     Route: 065
  6. PROLIA [Concomitant]
     Active Substance: DENOSUMAB
     Indication: PRODUCT USED FOR UNKNOWN INDICATION
     Dosage: UNK
     Route: 065
  7. ABATACEPT [Suspect]
     Active Substance: ABATACEPT
     Indication: RHEUMATOID ARTHRITIS
     Dosage: 1000 MILLIGRAM, Q4WK
     Route: 042
     Dates: start: 20190313
  8. LANSOPRAZOLE. [Concomitant]
     Active Substance: LANSOPRAZOLE
     Indication: PRODUCT USED FOR UNKNOWN INDICATION
     Dosage: UNK
     Route: 065

REACTIONS (23)
  - Nasopharyngitis [Recovering/Resolving]
  - Off label use [Unknown]
  - Spinal disorder [Unknown]
  - Concussion [Unknown]
  - Bursitis [Unknown]
  - Pain [Recovering/Resolving]
  - Osteoporosis [Recovering/Resolving]
  - Back pain [Recovering/Resolving]
  - Hypertension [Unknown]
  - Skin laceration [Unknown]
  - Pyrexia [Unknown]
  - Nausea [Recovering/Resolving]
  - Arthralgia [Unknown]
  - Blood creatine phosphokinase increased [Recovered/Resolved]
  - Blood urine present [Recovering/Resolving]
  - Dizziness [Unknown]
  - Cough [Unknown]
  - Rheumatoid arthritis [Recovering/Resolving]
  - Sciatica [Recovering/Resolving]
  - Malaise [Unknown]
  - Headache [Unknown]
  - Lower respiratory tract infection [Recovered/Resolved]
  - Fall [Recovering/Resolving]

NARRATIVE: CASE EVENT DATE: 20190606
